FAERS Safety Report 7988952-4 (Version None)
Quarter: 2011Q4

REPORT INFORMATION
  Report Type: 
  Country: None (occurrence: None)
  Receive Date: 20111219
  Receipt Date: 20111207
  Transmission Date: 20120403
  Serious: Yes (Other)
  Sender: FDA-Public Use
  Company Number: US-BAYER-2011-117976

PATIENT
  Age: 20 Year
  Sex: Female

DRUGS (3)
  1. YASMIN [Suspect]
     Dosage: UNK
     Dates: start: 20070301, end: 20100101
  2. YAZ [Suspect]
     Dosage: UNK
     Dates: start: 20070301, end: 20100101
  3. DROSPIRENONE AND ETHINYL ESTRADIOL [Suspect]
     Dosage: UNK
     Dates: start: 20070301, end: 20100101

REACTIONS (6)
  - EMOTIONAL DISTRESS [None]
  - INJURY [None]
  - CHOLELITHIASIS [None]
  - APPENDICECTOMY [None]
  - PAIN [None]
  - ANXIETY [None]
